FAERS Safety Report 4365871-6 (Version None)
Quarter: 2004Q2

REPORT INFORMATION
  Report Type: 
  Country: None (occurrence: None)
  Receive Date: 20040521
  Receipt Date: 20040512
  Transmission Date: 20050107
  Serious: Yes (Hospitalization)
  Sender: FDA-Public Use
  Company Number: 2004PK00582

PATIENT
  Age: 33 Year
  Sex: Female

DRUGS (6)
  1. SEROQUEL [Suspect]
     Indication: SCHIZOPHRENIA, RESIDUAL TYPE
     Dosage: 600 MG DAILY PO
     Route: 048
     Dates: start: 20020301
  2. SEROQUEL [Suspect]
     Indication: SCHIZOPHRENIA, RESIDUAL TYPE
     Dosage: 300 MG DAILY PO
     Route: 048
     Dates: start: 20040217, end: 20040327
  3. SEROQUEL [Suspect]
     Indication: SCHIZOPHRENIA, RESIDUAL TYPE
     Dosage: 1000 MG DAILY PO
     Route: 048
     Dates: start: 20040301
  4. CLOZAPINE [Concomitant]
  5. ORFIRIL    DESITIN [Concomitant]
  6. BROMOCRIPTIN [Concomitant]

REACTIONS (4)
  - AGGRESSION [None]
  - BRIEF PSYCHOTIC DISORDER, WITH POSTPARTUM ONSET [None]
  - DRUG INEFFECTIVE [None]
  - HYPOMANIA [None]
